FAERS Safety Report 7351891 (Version 3)
Quarter: 2012Q4

REPORT INFORMATION
  Report Type: 
  Country: US (occurrence: US)
  Receive Date: 20100412
  Receipt Date: 20121212
  Transmission Date: 20130627
  Serious: Yes (Hospitalization)
  Sender: FDA-Public Use
  Company Number: US-BAYER-201018524NA

PATIENT
  Age: 25 Year
  Sex: Female
  Weight: 72.56 kg

DRUGS (3)
  1. YAZ [Suspect]
     Dosage: As used dose: UNK
     Route: 048
     Dates: start: 200609, end: 200612
  2. YASMIN [Suspect]
     Dosage: As used dose: UNK
     Route: 048
     Dates: start: 200609, end: 200612
  3. SYNTHROID [Concomitant]

REACTIONS (3)
  - Deep vein thrombosis [None]
  - Pulmonary embolism [None]
  - Pain [None]
